FAERS Safety Report 10206036 (Version 1)
Quarter: 2014Q2

REPORT INFORMATION
  Report Type: Spontaneous
  Country: US (occurrence: None)
  Receive Date: 20140528
  Receipt Date: 20140528
  Transmission Date: 20141212
  Serious: Yes (Death, Life-Threatening)
  Sender: FDA-Public Use
  Company Number: None

PATIENT
  Sex: Female
  Weight: 73.48 kg

DRUGS (1)
  1. CHANTIX [Suspect]
     Indication: SMOKING CESSATION THERAPY
     Dosage: 1 MG 1 PILLS ONCE A DAY 100 PILLS
     Dates: start: 200907, end: 201010

REACTIONS (3)
  - Lung neoplasm malignant [None]
  - Pain [None]
  - Emotional distress [None]
